FAERS Safety Report 5279062-8 (Version None)
Quarter: 2007Q1

REPORT INFORMATION
  Report Type: 
  Country: None (occurrence: None)
  Receive Date: 20070328
  Receipt Date: 20060822
  Transmission Date: 20070707
  Serious: Yes (Hospitalization)
  Sender: FDA-Public Use
  Company Number: US-AMGEN-US190751

PATIENT
  Sex: Female

DRUGS (6)
  1. NEULASTA [Suspect]
     Indication: CHEMOTHERAPY
     Route: 065
     Dates: start: 20060810
  2. PRIOR TO STUDY DRUG INITIATION [Suspect]
     Indication: IDIOPATHIC THROMBOCYTOPENIC PURPURA
  3. RITUXAN [Concomitant]
     Dates: start: 20060807
  4. IFOSFAMIDE [Concomitant]
     Route: 065
     Dates: start: 20060807
  5. CARBOPLATIN [Concomitant]
     Route: 065
     Dates: start: 20060807
  6. ETOPOSIDE [Concomitant]
     Route: 065
     Dates: start: 20060807

REACTIONS (1)
  - PYREXIA [None]
